FAERS Safety Report 13354757 (Version 1)
Quarter: 2017Q1

REPORT INFORMATION
  Report Type: Spontaneous
  Country: JP (occurrence: JP)
  Receive Date: 20170321
  Receipt Date: 20170321
  Transmission Date: 20170429
  Serious: Yes (Hospitalization, Disabling, Other)
  Sender: FDA-Public Use
  Company Number: JP-009507513-1610JPN001731

PATIENT
  Age: 7 Month
  Sex: Female
  Weight: 6.8 kg

DRUGS (16)
  1. HALIZON [Concomitant]
     Active Substance: AMPHOTERICIN B
     Indication: PROPHYLAXIS
     Dosage: 6 ML, UNK
     Route: 048
     Dates: end: 20160218
  2. VANCOMYCIN [Concomitant]
     Active Substance: VANCOMYCIN
     Dosage: 480 MG, UNK
     Route: 051
     Dates: end: 20160303
  3. DOBUTAMINE [Concomitant]
     Active Substance: DOBUTAMINE\DOBUTAMINE HYDROCHLORIDE
     Dosage: 5.5 ?
     Route: 051
     Dates: end: 20160223
  4. AMIKACIN SULFATE. [Concomitant]
     Active Substance: AMIKACIN SULFATE
     Dosage: 100 MG, UNK
     Route: 051
     Dates: end: 20160302
  5. NEUTROGIN [Suspect]
     Active Substance: LENOGRASTIM
     Dosage: 30 MICROGRAM, UNK
     Route: 051
     Dates: end: 20160226
  6. CEFPIROME SULFATE [Suspect]
     Active Substance: CEFPIROME SULFATE
     Indication: PERITONITIS
     Dosage: 1280 MG, UNK
     Route: 051
     Dates: start: 20160303, end: 20160404
  7. FUNGUARD (MICAFUNGIN SODIUM) [Concomitant]
     Indication: PROPHYLAXIS
     Dosage: 7 MG, UNK
     Route: 051
     Dates: end: 20160214
  8. BACTRAMIN [Concomitant]
     Active Substance: SULFAMETHOXAZOLE\TRIMETHOPRIM
     Indication: PROPHYLAXIS
     Dosage: 30 MG, UNK
     Route: 048
  9. OMEPRAL [Concomitant]
     Active Substance: OMEPRAZOLE
     Indication: GASTROINTESTINAL HAEMORRHAGE
     Dosage: 4 MG, UNK
     Route: 051
     Dates: start: 20160308
  10. MEROPENEM. [Concomitant]
     Active Substance: MEROPENEM
     Dosage: 750 MG, UNK
     Route: 051
     Dates: end: 20160303
  11. SOLU-CORTEF [Concomitant]
     Active Substance: HYDROCORTISONE SODIUM SUCCINATE
     Dosage: 40 MG, UNK
     Route: 051
     Dates: end: 20160312
  12. GASTER [Concomitant]
     Active Substance: FAMOTIDINE
     Indication: SEPTIC SHOCK
     Dosage: 5 MG, UNK
     Route: 051
     Dates: end: 20160308
  13. MANNITOL. [Concomitant]
     Active Substance: MANNITOL
     Dosage: 96 ML, UNK
     Route: 051
  14. METRONIDAZOLE. [Suspect]
     Active Substance: METRONIDAZOLE
     Indication: PERITONITIS
     Dosage: 240 MG, UNK
     Route: 051
     Dates: start: 20160303, end: 20160404
  15. CANCIDAS [Suspect]
     Active Substance: CASPOFUNGIN ACETATE
     Indication: FEBRILE NEUTROPENIA
     Dosage: 25 MG, QD
     Route: 041
     Dates: start: 20160214, end: 20160214
  16. CANCIDAS [Suspect]
     Active Substance: CASPOFUNGIN ACETATE
     Dosage: 17 MG, QD
     Route: 041
     Dates: start: 20160215, end: 20160403

REACTIONS (8)
  - Blood lactate dehydrogenase increased [Recovered/Resolved]
  - Peritonitis [Recovered/Resolved]
  - C-reactive protein increased [Recovered/Resolved]
  - Neutrophil count increased [Recovered/Resolved]
  - Gamma-glutamyltransferase increased [Recovered/Resolved]
  - Gastrointestinal haemorrhage [Recovered/Resolved with Sequelae]
  - Blood alkaline phosphatase increased [Recovered/Resolved]
  - White blood cell count increased [Recovered/Resolved]

NARRATIVE: CASE EVENT DATE: 20160214
